FAERS Safety Report 9530136 (Version 1)
Quarter: 2013Q3

REPORT INFORMATION
  Report Type: Spontaneous
  Country: GB (occurrence: GB)
  Receive Date: 20130917
  Receipt Date: 20130917
  Transmission Date: 20140515
  Serious: Yes (Hospitalization, Other)
  Sender: FDA-Public Use
  Company Number: GB-ACTAVISPR-2013-15932

PATIENT
  Sex: Male

DRUGS (4)
  1. GEMCITABINE (UNKNOWN) [Suspect]
     Indication: HODGKIN^S DISEASE
     Dosage: 1 G/M^2/UNK
     Route: 065
  2. SODIUM VALPROATE [Concomitant]
     Indication: EPILEPSY
     Dosage: UNK
     Route: 065
  3. LAMOTRIGINE [Concomitant]
     Indication: EPILEPSY
     Dosage: UNK
     Route: 065
  4. PARACETAMOL [Concomitant]
     Indication: PAIN
     Dosage: UNK,AS NEEDED
     Route: 065

REACTIONS (2)
  - Acute hepatic failure [Recovered/Resolved]
  - Hepatic encephalopathy [Recovered/Resolved]
